FAERS Safety Report 19800345 (Version 1)
Quarter: 2021Q3

REPORT INFORMATION
  Report Type: Spontaneous
  Country: US (occurrence: US)
  Receive Date: 20210907
  Receipt Date: 20210907
  Transmission Date: 20211014
  Serious: No
  Sender: FDA-Public Use
  Company Number: US-JNJFOC-20210855832

PATIENT
  Age: 60 Year
  Sex: Female

DRUGS (1)
  1. MENS ROGAINE EXTRA STRENGTH [Suspect]
     Active Substance: MINOXIDIL
     Indication: LICHEN PLANOPILARIS
     Dosage: 1 CAPFUL
     Route: 065
     Dates: start: 20210826

REACTIONS (6)
  - Product use in unapproved indication [Unknown]
  - Product formulation issue [Unknown]
  - Overdose [Unknown]
  - Off label use [Unknown]
  - Poor quality product administered [Unknown]
  - Product use issue [Unknown]

NARRATIVE: CASE EVENT DATE: 20210826
